FAERS Safety Report 8394593 (Version 2)
Quarter: 2012Q4

REPORT INFORMATION
  Report Type: 
  Country: JP (occurrence: JP)
  Receive Date: 20120207
  Receipt Date: 20121121
  Transmission Date: 20130627
  Serious: Yes (Other)
  Sender: FDA-Public Use
  Company Number: JP-GLAXOSMITHKLINE-B0779407A

PATIENT
  Age: 56 Year
  Sex: Male

DRUGS (3)
  1. LAMICTAL [Suspect]
     Indication: BIPOLAR DISORDER
     Dosage: 100MG Per day
     Route: 048
     Dates: start: 20110901, end: 20111003
  2. ZYPREXA [Concomitant]
     Indication: BIPOLAR DISORDER
     Dosage: 20MG Per day
     Route: 048
  3. LONASEN [Concomitant]
     Dosage: 24MG Per day
     Route: 048
     Dates: start: 20110906, end: 20111003

REACTIONS (2)
  - Eczema [Recovered/Resolved]
  - Rash [Unknown]
